FAERS Safety Report 7969053-8 (Version None)
Quarter: 2011Q4

REPORT INFORMATION
  Report Type: 
  Country: None (occurrence: None)
  Receive Date: 20111209
  Receipt Date: 20111130
  Transmission Date: 20120403
  Serious: Yes (Other)
  Sender: FDA-Public Use
  Company Number: GB-ASTRAZENECA-2011SE64855

PATIENT
  Age: 72 Year
  Sex: Female
  Weight: 83 kg

DRUGS (2)
  1. PULMICORT [Suspect]
     Route: 055
  2. PULMICORT [Suspect]
     Indication: ASTHMA
     Route: 055
     Dates: start: 20090826, end: 20110705

REACTIONS (18)
  - HYPOTHYROIDISM [None]
  - CANDIDIASIS [None]
  - ATRIAL FIBRILLATION [None]
  - NASOPHARYNGITIS [None]
  - PALPITATIONS [None]
  - DRUG DOSE OMISSION [None]
  - TRANSIENT ISCHAEMIC ATTACK [None]
  - BRONCHITIS [None]
  - TACHYCARDIA [None]
  - COUGH [None]
  - MULTIPLE ALLERGIES [None]
  - ARRHYTHMIA [None]
  - ASTHMA [None]
  - CARDIAC DISORDER [None]
  - PNEUMONIA [None]
  - HYPERTENSION [None]
  - ANXIETY [None]
  - DRUG HYPERSENSITIVITY [None]
